FAERS Safety Report 17261133 (Version 2)
Quarter: 2020Q1

REPORT INFORMATION
  Report Type: Spontaneous
  Country: US (occurrence: US)
  Receive Date: 20200113
  Receipt Date: 20200205
  Transmission Date: 20200409
  Serious: Yes (Death)
  Sender: FDA-Public Use
  Company Number: US-HORIZON-KRY-0044-2020

PATIENT
  Age: 31 Year
  Sex: Male

DRUGS (7)
  1. PREDNSIONE [Concomitant]
     Dosage: 10MG EVERY DAY
  2. COUMADIN [Concomitant]
     Active Substance: WARFARIN SODIUM
     Dosage: 5MG PER DAY
  3. HECTOROL [Concomitant]
     Active Substance: DOXERCALCIFEROL
     Dosage: 2MCG 3X PER WEEK
  4. KRYSTEXXA [Suspect]
     Active Substance: PEGLOTICASE
     Indication: GOUT
     Dosage: 8MG Q2WEEKS
     Route: 042
     Dates: start: 201711, end: 20190117
  5. TOPROL XL [Concomitant]
     Active Substance: METOPROLOL SUCCINATE
     Dosage: 100MG EVERY DAY
  6. PROCRIT [Concomitant]
     Active Substance: ERYTHROPOIETIN
     Dosage: 8000 IU 3X PER WEEK
  7. TASIGNA [Concomitant]
     Active Substance: NILOTINIB
     Dosage: 200MG 2X PER WEEK

REACTIONS (3)
  - Cardiac arrest [Fatal]
  - Sepsis [Fatal]
  - Device related infection [Fatal]
